FAERS Safety Report 8272100-X (Version None)
Quarter: 2012Q2

REPORT INFORMATION
  Report Type: 
  Country: None (occurrence: None)
  Receive Date: 20120410
  Receipt Date: 20120403
  Transmission Date: 20120825
  Serious: Yes (Other)
  Sender: FDA-Public Use
  Company Number: BR-JNJFOC-20120402028

PATIENT
  Age: 67 Year
  Sex: Male
  Weight: 80 kg

DRUGS (3)
  1. HALDOL [Suspect]
     Indication: EPILEPSY
     Route: 048
     Dates: start: 19990101
  2. PHENOBARBITAL TAB [Interacting]
     Indication: EPILEPSY
     Route: 065
  3. TEGRETOL [Interacting]
     Indication: EPILEPSY
     Route: 065

REACTIONS (12)
  - WEIGHT DECREASED [None]
  - VOMITING [None]
  - BLOOD SODIUM DECREASED [None]
  - DYSURIA [None]
  - DYSGEUSIA [None]
  - GAIT DISTURBANCE [None]
  - BLOOD POTASSIUM DECREASED [None]
  - CATARACT [None]
  - DRUG INTERACTION [None]
  - NAUSEA [None]
  - DYSKINESIA [None]
  - SALIVARY HYPERSECRETION [None]
